FAERS Safety Report 9343766 (Version 2)
Quarter: 2013Q3

REPORT INFORMATION
  Report Type: Report from Study
  Country: CA (occurrence: CA)
  Receive Date: 20130612
  Receipt Date: 20130726
  Transmission Date: 20140515
  Serious: Yes (Hospitalization, Other)
  Sender: FDA-Public Use
  Company Number: CA-JNJFOC-20130605003

PATIENT
  Sex: Female

DRUGS (16)
  1. SIMPONI [Suspect]
     Indication: RHEUMATOID ARTHRITIS
     Route: 065
     Dates: start: 20110910, end: 201211
  2. CORTISONE [Concomitant]
  3. CELEBREX [Concomitant]
  4. AAS [Concomitant]
  5. ATORVASTATIN [Concomitant]
  6. VITAMIN D [Concomitant]
  7. CALCITONIN SANDOZ [Concomitant]
  8. PANTOPRAZOLE [Concomitant]
  9. LYRICA [Concomitant]
  10. LASIX [Concomitant]
  11. CITALOPRAM [Concomitant]
  12. FENTANYL [Concomitant]
  13. DILAUDID [Concomitant]
  14. SYNTHROID [Concomitant]
  15. CYCLOBENZAPRINE [Concomitant]
  16. CALCIUM [Concomitant]

REACTIONS (2)
  - Clostridium difficile infection [Unknown]
  - Urinary tract infection [Unknown]
